FAERS Safety Report 4297253-X (Version None)
Quarter: 2004Q1

REPORT INFORMATION
  Report Type: 
  Country: None (occurrence: None)
  Receive Date: 20040213
  Receipt Date: 20040205
  Transmission Date: 20041129
  Serious: Yes (Death)
  Sender: FDA-Public Use
  Company Number: 04-02-0198

PATIENT
  Age: 88 Year
  Sex: Female

DRUGS (8)
  1. QVAR INHALATION AEROSOL - IVAX LABORATORIES ORAL AEROSOL [Suspect]
     Indication: ASTHMA
     Dosage: 200MCG/DAY INHALATION
     Route: 055
     Dates: start: 20030605, end: 20030814
  2. LEVODOPA-CARBIDOPA UNKNOWN [Suspect]
     Dosage: INHALATION
     Route: 055
  3. DIGOXIN [Suspect]
  4. LASIX [Suspect]
  5. NIFEDIPINE [Suspect]
  6. THEOPHYLLINE [Suspect]
  7. AMROXOL HYDROCHLORIDE UNKNOWN [Suspect]
  8. POTASSIUM PERMANGANATE UNKNOWN [Suspect]

REACTIONS (1)
  - PNEUMONIA STAPHYLOCOCCAL [None]
